FAERS Safety Report 23718300 (Version 1)
Quarter: 2024Q2

REPORT INFORMATION
  Report Type: Spontaneous
  Country: BR (occurrence: BR)
  Receive Date: 20240408
  Receipt Date: 20240408
  Transmission Date: 20240715
  Serious: Yes (Life-Threatening)
  Sender: FDA-Public Use
  Company Number: BR-DSJP-DSE-2024-115404

PATIENT
  Age: 35 Year
  Sex: Female

DRUGS (1)
  1. EDOXABAN TOSYLATE [Suspect]
     Active Substance: EDOXABAN TOSYLATE
     Indication: Product used for unknown indication
     Dosage: 60 MG FOR 1 YEAR
     Route: 065

REACTIONS (2)
  - Mesenteric vein thrombosis [Unknown]
  - Renal vein thrombosis [Unknown]
